FAERS Safety Report 7495018-9 (Version None)
Quarter: 2011Q2

REPORT INFORMATION
  Report Type: 
  Country: None (occurrence: None)
  Receive Date: 20110520
  Receipt Date: 20110516
  Transmission Date: 20111010
  Serious: Yes (Other)
  Sender: FDA-Public Use
  Company Number: US-ELI_LILLY_AND_COMPANY-US200906006009

PATIENT
  Sex: Male
  Weight: 102.49 kg

DRUGS (14)
  1. GLIPIZIDE [Concomitant]
     Dosage: 2.5 MG, QD
     Route: 048
  2. ASPIRIN [Concomitant]
     Dosage: 81 MG, QD
     Route: 048
  3. IBUPROFEN [Concomitant]
     Dosage: 800 MG, PRN
     Route: 048
  4. BYETTA [Suspect]
     Dosage: UNK UNK, UNKNOWN
     Route: 058
     Dates: start: 20081001
  5. ACTOS [Concomitant]
     Dosage: 15 MG, QD
     Route: 048
  6. NEURONTIN [Concomitant]
     Dosage: 300 MG, TID
     Route: 048
  7. ERGOCALCIFEROL [Concomitant]
     Dosage: 50000 IU, 2/W
     Route: 048
  8. LUNESTA [Concomitant]
     Dosage: 20 MG, EACH EVENING
     Route: 048
  9. CADUET [Concomitant]
     Dosage: 1 DF, QD
     Route: 048
  10. TRAMADOL HCL [Concomitant]
     Dosage: 50 MG, EVERY 6 HRS
     Route: 048
  11. BYETTA [Suspect]
     Dosage: 10 UG, BID
     Route: 058
     Dates: end: 20090301
  12. METFORMIN HCL [Concomitant]
     Dosage: 1000 MG, BID
     Route: 048
  13. TRAMADOL HCL [Concomitant]
     Dosage: 90 MG, PRN
     Route: 048
  14. FLUOXETINE [Concomitant]
     Dosage: 20 MG, QD
     Route: 048

REACTIONS (3)
  - ABDOMINAL PAIN [None]
  - PANCREATITIS [None]
  - RENAL INJURY [None]
